FAERS Safety Report 17981584 (Version 2)
Quarter: 2025Q3

REPORT INFORMATION
  Report Type: Spontaneous
  Country: EU (occurrence: EU)
  Receive Date: 20200706
  Receipt Date: 20250703
  Transmission Date: 20251021
  Serious: Yes (Life-Threatening, Hospitalization, Other)
  Sender: AUROBINDO
  Company Number: EU-SA-2020SA155109

PATIENT
  Age: 65 Year
  Sex: Male

DRUGS (3)
  1. AZITHROMYCIN [Suspect]
     Active Substance: AZITHROMYCIN
     Indication: COVID-19
     Route: 065
     Dates: start: 202003
  2. HYDROXYCHLOROQUINE [Suspect]
     Active Substance: HYDROXYCHLOROQUINE
     Indication: COVID-19
     Route: 065
     Dates: start: 202003, end: 202003
  3. HYDROXYCHLOROQUINE [Suspect]
     Active Substance: HYDROXYCHLOROQUINE
     Indication: Product use in unapproved indication

REACTIONS (5)
  - Acute kidney injury [Not Recovered/Not Resolved]
  - Haemolysis [Recovering/Resolving]
  - Renal ischaemia [Unknown]
  - Toxicity to various agents [Unknown]
  - Off label use [Unknown]

NARRATIVE: CASE EVENT DATE: 20200301
